FAERS Safety Report 12384750 (Version 1)
Quarter: 2016Q2

REPORT INFORMATION
  Report Type: Spontaneous
  Country: US (occurrence: US)
  Receive Date: 20160519
  Receipt Date: 20160519
  Transmission Date: 20160815
  Serious: No
  Sender: FDA-Public Use
  Company Number: US-009507513-1604USA014053

PATIENT
  Age: 41 Year
  Sex: Female

DRUGS (1)
  1. NEXPLANON [Suspect]
     Active Substance: ETONOGESTREL
     Dosage: STRENGTH 68 MG, 1 STANDARD PACKAGE PREFLAP OF 1, EVERY 3 YEARS
     Route: 059
     Dates: start: 20141103

REACTIONS (1)
  - Device breakage [Not Recovered/Not Resolved]
